FAERS Safety Report 4823275-3 (Version None)
Quarter: 2005Q4

REPORT INFORMATION
  Report Type: 
  Country: None (occurrence: None)
  Receive Date: 20051107
  Receipt Date: 20051025
  Transmission Date: 20060501
  Serious: Yes (Other)
  Sender: FDA-Public Use
  Company Number: 2005146782

PATIENT
  Sex: Male

DRUGS (5)
  1. CAVERJECT [Suspect]
     Indication: MICTURITION URGENCY
     Dosage: 5 MCG, AS NECESSARY, INTRACAVERNOSA
     Route: 017
     Dates: end: 20050101
  2. CAVERJECT [Suspect]
     Indication: SEXUAL INHIBITION
     Dosage: 5 MCG, AS NECESSARY, INTRACAVERNOSA
     Route: 017
     Dates: end: 20050101
  3. VIAGRA [Suspect]
     Indication: MICTURITION URGENCY
  4. VIAGRA [Suspect]
     Indication: SEXUAL INHIBITION
  5. ALFADIL          (DOXAZOSIN) [Concomitant]

REACTIONS (5)
  - DRUG EFFECT DECREASED [None]
  - INCORRECT DOSE ADMINISTERED [None]
  - INJURY [None]
  - PENIS DISORDER [None]
  - PRIAPISM [None]
